FAERS Safety Report 4839950-0 (Version None)
Quarter: 2005Q4

REPORT INFORMATION
  Report Type: 
  Country: None (occurrence: None)
  Receive Date: 20051125
  Receipt Date: 20051116
  Transmission Date: 20060501
  Serious: Yes (Death, Other)
  Sender: FDA-Public Use
  Company Number: 430002L05ESP

PATIENT

DRUGS (1)
  1. MITOXANTRONE [Suspect]
     Indication: MULTIPLE SCLEROSIS
     Dosage: 12 MG/M2, 1 IN 1 MONTHS, UNKNOWN; 12 MG/M2, 1 IN 3 MONTHS, UNKNOWN

REACTIONS (1)
  - LEUKAEMIA [None]
